FAERS Safety Report 13806065 (Version 2)
Quarter: 2017Q3

REPORT INFORMATION
  Report Type: Report from Study
  Country: FR (occurrence: FR)
  Receive Date: 20170728
  Receipt Date: 20170802
  Transmission Date: 20171127
  Serious: Yes (Other)
  Sender: FDA-Public Use
  Company Number: PHHO2017FR010852

PATIENT
  Age: 66 Year
  Sex: Male

DRUGS (1)
  1. EVEROLIMUS [Suspect]
     Active Substance: EVEROLIMUS
     Indication: RENAL TRANSPLANT
     Dosage: UNK
     Route: 065
     Dates: start: 20170223

REACTIONS (4)
  - Acute coronary syndrome [Unknown]
  - Renal haematoma [Unknown]
  - Septic shock [Unknown]
  - Complications of transplanted kidney [Unknown]

NARRATIVE: CASE EVENT DATE: 20170225
